FAERS Safety Report 19310186 (Version 2)
Quarter: 2022Q1

REPORT INFORMATION
  Report Type: Spontaneous
  Country: CA (occurrence: CA)
  Receive Date: 20210526
  Receipt Date: 20220321
  Transmission Date: 20220423
  Serious: Yes (Hospitalization)
  Sender: FDA-Public Use
  Company Number: CA-ALLERGAN-2120387US

PATIENT
  Sex: Female
  Weight: 68.04 kg

DRUGS (1)
  1. ESCITALOPRAM OXALATE [Suspect]
     Active Substance: ESCITALOPRAM OXALATE
     Indication: Anxiolytic therapy
     Dosage: 10 MG
     Route: 048
     Dates: start: 2012, end: 20161217

REACTIONS (2)
  - Hemiplegia [Recovered/Resolved]
  - Reversible cerebral vasoconstriction syndrome [Recovered/Resolved]

NARRATIVE: CASE EVENT DATE: 20161210
